FAERS Safety Report 4400017-7 (Version None)
Quarter: 2004Q3

REPORT INFORMATION
  Report Type: 
  Country: None (occurrence: None)
  Receive Date: 20040714
  Receipt Date: 20040629
  Transmission Date: 20050211
  Serious: Yes (Other)
  Sender: FDA-Public Use
  Company Number: JP-JNJFOC-20040701503

PATIENT
  Age: 69 Year
  Sex: Male

DRUGS (8)
  1. FENTANYL [Suspect]
     Indication: CANCER PAIN
     Dosage: SEE IMAGE
     Route: 062
     Dates: start: 20040604, end: 20040609
  2. FENTANYL [Suspect]
     Indication: CANCER PAIN
     Dosage: SEE IMAGE
     Route: 062
     Dates: start: 20040610, end: 20040615
  3. ZOLPIDEM TARTRATE [Concomitant]
  4. MORPHINE [Concomitant]
  5. CAMOSTAT BESILATE (CAMOSTAT BESILATE) [Concomitant]
  6. MEDROXYPEROGESTERONE ACETATE (MEDROXYPROGESTERONE ACETATE) [Concomitant]
  7. BROMHEXINE HYDROCHLORIDE (BROMHEXINE HYDROCHLORIDE) [Concomitant]
  8. AMBROXOL HYDROCHLORIDE (AMBROXOL HYDROCHLORIDE) [Concomitant]

REACTIONS (2)
  - BLOOD POTASSIUM INCREASED [None]
  - PNEUMONIA [None]
